FAERS Safety Report 13695748 (Version 2)
Quarter: 2018Q1

REPORT INFORMATION
  Report Type: Spontaneous
  Country: IT (occurrence: IT)
  Receive Date: 20170627
  Receipt Date: 20180207
  Transmission Date: 20180508
  Serious: Yes (Hospitalization)
  Sender: FDA-Public Use
  Company Number: PHHY2017IT090410

PATIENT
  Age: 43 Year
  Sex: Female

DRUGS (2)
  1. DESLORATADINE. [Suspect]
     Active Substance: DESLORATADINE
     Indication: PRODUCT USED FOR UNKNOWN INDICATION
     Dosage: 5 MG, UNK
     Route: 048
     Dates: start: 20160515
  2. RINOGUTT [Suspect]
     Active Substance: TRAMAZOLINE HYDROCHLORIDE
     Indication: PRODUCT USED FOR UNKNOWN INDICATION
     Dosage: 4 PUFFS
     Route: 065
     Dates: start: 20160515, end: 20160515

REACTIONS (5)
  - Chest pain [Recovering/Resolving]
  - Overdose [Recovering/Resolving]
  - Electrocardiogram change [Recovering/Resolving]
  - Sopor [Recovering/Resolving]
  - Headache [Recovering/Resolving]

NARRATIVE: CASE EVENT DATE: 20160515
